FAERS Safety Report 8145960-0 (Version None)
Quarter: 2012Q1

REPORT INFORMATION
  Report Type: 
  Country: None (occurrence: None)
  Receive Date: 20120217
  Receipt Date: 20120213
  Transmission Date: 20120608
  Serious: Yes (Death, Life-Threatening)
  Sender: FDA-Public Use
  Company Number: DE-ASTRAZENECA-2011SE46682

PATIENT
  Age: 21 Year
  Sex: Male
  Weight: 120 kg

DRUGS (3)
  1. MORE THAN 20 DRUGS [Suspect]
     Route: 065
  2. PROPOFOL [Suspect]
     Indication: ANALGESIC THERAPY
     Dosage: 3 MG/KG BODY WEIGHT/HOUR
     Route: 042
     Dates: start: 20110726, end: 20110801
  3. PROPOFOL [Suspect]
     Indication: SEDATIVE THERAPY
     Dosage: 3 MG/KG BODY WEIGHT/HOUR
     Route: 042
     Dates: start: 20110726, end: 20110801

REACTIONS (7)
  - PROPOFOL INFUSION SYNDROME [None]
  - RHABDOMYOLYSIS [None]
  - HYPERKALAEMIA [None]
  - MYOGLOBIN BLOOD INCREASED [None]
  - PYREXIA [None]
  - HYPERTHERMIA [None]
  - RESUSCITATION [None]
